FAERS Safety Report 9702136 (Version 1)
Quarter: 2013Q4

REPORT INFORMATION
  Report Type: Report from Study
  Country: AU (occurrence: AU)
  Receive Date: 20131121
  Receipt Date: 20131121
  Transmission Date: 20140711
  Serious: Yes (Other)
  Sender: FDA-Public Use
  Company Number: AU-BAYER-2013-138185

PATIENT
  Age: 47 Year
  Sex: Male

DRUGS (1)
  1. BETAFERON [Suspect]
     Indication: MULTIPLE SCLEROSIS
     Dosage: 250 MCG/ML, QOD
     Route: 058
     Dates: start: 20110701

REACTIONS (2)
  - Central nervous system lesion [None]
  - Dizziness [Recovering/Resolving]
